FAERS Safety Report 24148993 (Version 5)
Quarter: 2024Q4

REPORT INFORMATION
  Report Type: Spontaneous
  Country: US (occurrence: US)
  Receive Date: 20240729
  Receipt Date: 20241025
  Transmission Date: 20250115
  Serious: Yes (Other)
  Sender: MALLINCKRODT
  Company Number: US-MALLINCKRODT-MNK202404749

PATIENT
  Sex: Female

DRUGS (2)
  1. CORTICOTROPIN [Suspect]
     Active Substance: CORTICOTROPIN
     Indication: Scleritis
     Dosage: 80 UNITS
     Route: 058
  2. CORTICOTROPIN [Suspect]
     Active Substance: CORTICOTROPIN
     Dosage: 80 UNITS
     Route: 058

REACTIONS (6)
  - COVID-19 [Not Recovered/Not Resolved]
  - Vision blurred [Not Recovered/Not Resolved]
  - Discomfort [Unknown]
  - Pain [Recovering/Resolving]
  - Illness [Not Recovered/Not Resolved]
  - Feeling abnormal [Unknown]
